FAERS Safety Report 16777381 (Version 2)
Quarter: 2019Q3

REPORT INFORMATION
  Report Type: Spontaneous
  Country: JP (occurrence: JP)
  Receive Date: 20190905
  Receipt Date: 20190913
  Transmission Date: 20191005
  Serious: Yes (Hospitalization, Other)
  Sender: FDA-Public Use
  Company Number: JP-009507513-1909JPN001574

PATIENT
  Age: 88 Year
  Sex: Female

DRUGS (9)
  1. AMLODIPINE BESYLATE. [Suspect]
     Active Substance: AMLODIPINE BESYLATE
     Indication: PRODUCT USED FOR UNKNOWN INDICATION
     Dosage: UNK
  2. JANUVIA [Suspect]
     Active Substance: SITAGLIPTIN PHOSPHATE
     Indication: DIABETES MELLITUS
     Dosage: UNK
  3. ROMOSOZUMAB [Suspect]
     Active Substance: ROMOSOZUMAB
     Dosage: UNK
     Dates: start: 2019
  4. ROMOSOZUMAB [Suspect]
     Active Substance: ROMOSOZUMAB
     Dosage: UNK
     Dates: start: 20190826
  5. ROMOSOZUMAB [Suspect]
     Active Substance: ROMOSOZUMAB
     Indication: OSTEOPOROSIS
     Dosage: 210 MILLIGRAM, SINGLE DOSE PREFILLED SYRINGE
     Route: 058
     Dates: start: 20190320
  6. LIXIANA [Suspect]
     Active Substance: EDOXABAN TOSYLATE
     Indication: PRODUCT USED FOR UNKNOWN INDICATION
     Dosage: UNK
  7. FUROSEMIDE. [Concomitant]
     Active Substance: FUROSEMIDE
  8. ROMOSOZUMAB [Suspect]
     Active Substance: ROMOSOZUMAB
     Dosage: UNK
     Dates: start: 20190729
  9. ACARBOSE. [Suspect]
     Active Substance: ACARBOSE
     Indication: DIABETES MELLITUS
     Dosage: UNK

REACTIONS (1)
  - Cerebral infarction [Recovered/Resolved]

NARRATIVE: CASE EVENT DATE: 20190704
